FAERS Safety Report 7156100-9 (Version None)
Quarter: 2010Q4

REPORT INFORMATION
  Report Type: 
  Country: None (occurrence: None)
  Receive Date: 20101123
  Receipt Date: 20100927
  Transmission Date: 20110411
  Serious: Yes (Hospitalization)
  Sender: FDA-Public Use
  Company Number: 019544

PATIENT
  Sex: Female

DRUGS (1)
  1. CIMZIA [Suspect]
     Dosage: UNSPECIFIED SUBCUTANEOUS
     Route: 058
     Dates: start: 20100801

REACTIONS (4)
  - CROHN'S DISEASE [None]
  - MALAISE [None]
  - NIGHT SWEATS [None]
  - PYREXIA [None]
